FAERS Safety Report 10202470 (Version 2)
Quarter: 2014Q2

REPORT INFORMATION
  Report Type: Spontaneous
  Country: US (occurrence: US)
  Receive Date: 20140528
  Receipt Date: 20140528
  Transmission Date: 20141212
  Serious: Yes (Hospitalization)
  Sender: FDA-Public Use
  Company Number: US-BRISTOL-MYERS SQUIBB COMPANY-20352696

PATIENT
  Age: 69 Year
  Sex: Female
  Weight: 95.24 kg

DRUGS (26)
  1. BYDUREON [Suspect]
     Indication: TYPE 2 DIABETES MELLITUS
     Route: 058
     Dates: start: 20140120, end: 20140307
  2. EFIENT [Concomitant]
  3. ASPIRIN [Concomitant]
  4. CARVEDILOL [Concomitant]
  5. AMLODIPINE [Concomitant]
  6. TIMOLOL [Concomitant]
     Dosage: 1DF: 0.5 EYE DROPS
     Route: 047
  7. TRAMADOL [Concomitant]
     Dosage: 2 TIMES A DAY
  8. LEVOTHYROXINE [Concomitant]
  9. GLIMEPIRIDE [Concomitant]
  10. METFORMIN [Concomitant]
  11. LYRICA [Concomitant]
  12. GABAPENTIN [Concomitant]
  13. ZETIA [Concomitant]
  14. ATORVASTATIN [Concomitant]
  15. FUROSEMIDE [Concomitant]
  16. PANTOPRAZOLE [Concomitant]
  17. LOSARTAN [Concomitant]
  18. PROTONIX [Concomitant]
  19. FISH OIL [Concomitant]
  20. NORVASC [Concomitant]
  21. LIPITOR [Concomitant]
  22. COREG [Concomitant]
  23. LASIX [Concomitant]
  24. NEURONTIN [Concomitant]
  25. CELEBREX [Concomitant]
  26. TRAMADOL [Concomitant]

REACTIONS (4)
  - Cholelithiasis [Unknown]
  - Oesophagitis [Unknown]
  - Barrett^s oesophagus [Not Recovered/Not Resolved]
  - Blood pressure increased [Unknown]
